FAERS Safety Report 13747604 (Version 2)
Quarter: 2017Q4

REPORT INFORMATION
  Report Type: Spontaneous
  Country: US (occurrence: US)
  Receive Date: 20170712
  Receipt Date: 20171215
  Transmission Date: 20180320
  Serious: Yes (Death, Life-Threatening, Hospitalization)
  Sender: FDA-Public Use
  Company Number: US-VIFOR (INTERNATIONAL) INC.-VIT-2016-05591

PATIENT
  Age: 64 Year
  Sex: Male

DRUGS (1)
  1. VELTASSA [Suspect]
     Active Substance: PATIROMER
     Indication: HYPERKALAEMIA
     Route: 048
     Dates: start: 20160505, end: 20170905

REACTIONS (3)
  - Cardiac arrest [Recovering/Resolving]
  - Death [Fatal]
  - Anal haemorrhage [Unknown]

NARRATIVE: CASE EVENT DATE: 2016
